FAERS Safety Report 20903197 (Version 3)
Quarter: 2022Q2

REPORT INFORMATION
  Report Type: Report from Study
  Country: US (occurrence: None)
  Receive Date: 20220601
  Receipt Date: 20220616
  Transmission Date: 20220720
  Serious: Yes (Hospitalization)
  Sender: FDA-Public Use
  Company Number: US-Merck Healthcare KGaA-9325691

PATIENT
  Age: 46 Year
  Sex: Female

DRUGS (2)
  1. MAVENCLAD [Suspect]
     Active Substance: CLADRIBINE
     Indication: Multiple sclerosis
     Dosage: YEAR ONE THERAPY
     Route: 048
     Dates: start: 20201105
  2. MAVENCLAD [Suspect]
     Active Substance: CLADRIBINE
     Dosage: YEAR TWO MONTH ONE THERAPY
     Route: 048
     Dates: start: 20220124

REACTIONS (9)
  - Tissue infiltration [Recovering/Resolving]
  - Benign ovarian tumour [Recovering/Resolving]
  - Benign fallopian tube neoplasm [Recovering/Resolving]
  - Benign small intestinal neoplasm [Recovering/Resolving]
  - Ovarian rupture [Recovering/Resolving]
  - Intestinal perforation [Recovering/Resolving]
  - Pain [Unknown]
  - Nausea [Unknown]
  - Device malfunction [Unknown]

NARRATIVE: CASE EVENT DATE: 20220501
